FAERS Safety Report 8444847-3 (Version None)
Quarter: 2012Q2

REPORT INFORMATION
  Report Type: 
  Country: None (occurrence: None)
  Receive Date: 20120618
  Receipt Date: 20120613
  Transmission Date: 20120825
  Serious: Yes (Hospitalization, Other)
  Sender: FDA-Public Use
  Company Number: PHHY2012JP050799

PATIENT
  Age: 91 Year
  Sex: Female

DRUGS (4)
  1. ATELEC [Concomitant]
     Route: 048
  2. PLAVIX [Concomitant]
     Route: 048
  3. RASILEZ [Suspect]
     Indication: HYPERTENSION
     Route: 048
  4. AVAPRO [Concomitant]
     Route: 048

REACTIONS (3)
  - ANAEMIA [None]
  - HAEMORRHAGIC ANAEMIA [None]
  - GASTROINTESTINAL HAEMORRHAGE [None]
